FAERS Safety Report 4317532-7 (Version None)
Quarter: 2004Q1

REPORT INFORMATION
  Report Type: 
  Country: None (occurrence: None)
  Receive Date: 20040312
  Receipt Date: 20040303
  Transmission Date: 20041129
  Serious: Yes (Hospitalization)
  Sender: FDA-Public Use
  Company Number: US-SHR-03-017046

PATIENT
  Age: 44 Year
  Sex: Female
  Weight: 79.4 kg

DRUGS (27)
  1. BETASERON [Suspect]
     Indication: MULTIPLE SCLEROSIS
     Dosage: 8 MIU, EVERY 2D, SUBCUTANEOUS
     Route: 058
     Dates: start: 19991005
  2. BEXTRA [Concomitant]
  3. SYNTHROID [Concomitant]
  4. VITAMINS NOS (VITAMINS NOS) [Concomitant]
  5. CHLORPHENIRAMINE MALEATE [Concomitant]
  6. ASACOL [Concomitant]
  7. IBUPROFEN [Concomitant]
  8. PLENDIL ER (FELODPINE) [Concomitant]
  9. DEPAKOTE [Concomitant]
  10. NEURONTIN [Concomitant]
  11. CARISOPRODOL [Concomitant]
  12. CALCIUM CARBONATE [Concomitant]
  13. PREDNISOLONE [Concomitant]
  14. HYDROXYZINE [Concomitant]
  15. ATENOLOL [Concomitant]
  16. PRENATAL (CALCIUM GLUCONATE, CUPRIC CARBONATE, BASIC, FERROUS SULFATE, [Concomitant]
  17. ALBUTEROL [Concomitant]
  18. PULMICORT [Concomitant]
  19. BIAXIN XL [Concomitant]
  20. ALLOPURINOL [Concomitant]
  21. INDOMETHACIN [Concomitant]
  22. FLURAZEPAM [Concomitant]
  23. PROTONIX [Concomitant]
  24. ENALAPRIL MALEATE [Concomitant]
  25. FERRO-SEQUELS (DOCUSATE SODIUM) [Concomitant]
  26. HYDROCODONE [Concomitant]
  27. DOC-A-LACE [Concomitant]

REACTIONS (8)
  - ABASIA [None]
  - BACTERIAL INFECTION [None]
  - COMA [None]
  - DECUBITUS ULCER [None]
  - FALL [None]
  - INTENTIONAL OVERDOSE [None]
  - NOSOCOMIAL INFECTION [None]
  - SUDDEN DEATH [None]
